FAERS Safety Report 11441843 (Version 1)
Quarter: 2015Q3

REPORT INFORMATION
  Report Type: Spontaneous
  Country: JP (occurrence: JP)
  Receive Date: 20150901
  Receipt Date: 20150901
  Transmission Date: 20151125
  Serious: Yes (Hospitalization)
  Sender: FDA-Public Use
  Company Number: JP-PFIZER INC-2015266495

PATIENT
  Age: 90 Year
  Sex: Male

DRUGS (2)
  1. ALOSENN [Concomitant]
     Active Substance: SENNA LEAF
  2. ALDACTONE A [Suspect]
     Active Substance: SPIRONOLACTONE
     Dosage: 25 MG, DAILY
     Route: 048

REACTIONS (1)
  - Joint dislocation postoperative [Unknown]
